FAERS Safety Report 24250480 (Version 1)
Quarter: 2024Q3

REPORT INFORMATION
  Report Type: Spontaneous
  Country: US (occurrence: None)
  Receive Date: 20240824
  Receipt Date: 20240824
  Transmission Date: 20241017
  Serious: Yes (Other)
  Sender: Public
  Company Number: None

PATIENT
  Age: 25 Year
  Sex: Female
  Weight: 90 kg

DRUGS (1)
  1. WEGOVY [Suspect]
     Active Substance: SEMAGLUTIDE
     Indication: Weight decreased
     Dates: start: 20240426, end: 20240426

REACTIONS (6)
  - Panic attack [None]
  - Suicidal ideation [None]
  - Depression [None]
  - Anxiety [None]
  - Insomnia [None]
  - Near death experience [None]

NARRATIVE: CASE EVENT DATE: 20240426
